FAERS Safety Report 20836464 (Version 1)
Quarter: 2022Q2

REPORT INFORMATION
  Report Type: Spontaneous
  Country: US (occurrence: US)
  Receive Date: 20220517
  Receipt Date: 20220517
  Transmission Date: 20220720
  Serious: No
  Sender: FDA-Public Use
  Company Number: US-JNJFOC-20220523234

PATIENT
  Sex: Male

DRUGS (1)
  1. OPSUMIT [Suspect]
     Active Substance: MACITENTAN
     Indication: Product used for unknown indication
     Route: 048

REACTIONS (6)
  - Asthenia [Unknown]
  - Fatigue [Unknown]
  - Headache [Unknown]
  - Nasopharyngitis [Unknown]
  - Diarrhoea [Unknown]
  - Weight decreased [Unknown]
